FAERS Safety Report 8610554-7 (Version None)
Quarter: 2012Q3

REPORT INFORMATION
  Report Type: 
  Country: None (occurrence: None)
  Receive Date: 20120808
  Receipt Date: 20120726
  Transmission Date: 20120928
  Serious: Yes (Other)
  Sender: FDA-Public Use
  Company Number: JPI-P-020919

PATIENT
  Age: 32 Year
  Sex: Female
  Weight: 56.6996 kg

DRUGS (11)
  1. XYREM [Suspect]
     Indication: SOMNOLENCE
     Dosage: 4.5 GM (2.25 GM, 2 IN 1 D), ORAL   6 GM (3 GM, 2 IN 1 D), ORAL    (4.5 GM  (SPLIT) NIGHTLY), ORAL
     Route: 048
     Dates: start: 20120101, end: 20120627
  2. XYREM [Suspect]
     Indication: NARCOLEPSY
     Dosage: 4.5 GM (2.25 GM, 2 IN 1 D), ORAL   6 GM (3 GM, 2 IN 1 D), ORAL    (4.5 GM  (SPLIT) NIGHTLY), ORAL
     Route: 048
     Dates: start: 20120101, end: 20120627
  3. XYREM [Suspect]
     Indication: SOMNOLENCE
     Dosage: 4.5 GM (2.25 GM, 2 IN 1 D), ORAL   6 GM (3 GM, 2 IN 1 D), ORAL    (4.5 GM  (SPLIT) NIGHTLY), ORAL
     Route: 048
     Dates: start: 20111110
  4. XYREM [Suspect]
     Indication: NARCOLEPSY
     Dosage: 4.5 GM (2.25 GM, 2 IN 1 D), ORAL   6 GM (3 GM, 2 IN 1 D), ORAL    (4.5 GM  (SPLIT) NIGHTLY), ORAL
     Route: 048
     Dates: start: 20111110
  5. XYREM [Suspect]
     Indication: SOMNOLENCE
     Dosage: 4.5 GM (2.25 GM, 2 IN 1 D), ORAL   6 GM (3 GM, 2 IN 1 D), ORAL    (4.5 GM  (SPLIT) NIGHTLY), ORAL
     Route: 048
     Dates: start: 20111220
  6. XYREM [Suspect]
     Indication: NARCOLEPSY
     Dosage: 4.5 GM (2.25 GM, 2 IN 1 D), ORAL   6 GM (3 GM, 2 IN 1 D), ORAL    (4.5 GM  (SPLIT) NIGHTLY), ORAL
     Route: 048
     Dates: start: 20111220
  7. XYREM [Suspect]
     Indication: SOMNOLENCE
     Dosage: 4.5 GM (2.25 GM, 2 IN 1 D), ORAL   6 GM (3 GM, 2 IN 1 D), ORAL    (4.5 GM  (SPLIT) NIGHTLY), ORAL
     Route: 048
     Dates: start: 20120101, end: 20120101
  8. XYREM [Suspect]
     Indication: NARCOLEPSY
     Dosage: 4.5 GM (2.25 GM, 2 IN 1 D), ORAL   6 GM (3 GM, 2 IN 1 D), ORAL    (4.5 GM  (SPLIT) NIGHTLY), ORAL
     Route: 048
     Dates: start: 20120101, end: 20120101
  9. MIDAZOLAM [Suspect]
     Indication: THERAPEUTIC PROCEDURE
  10. MULTIPLE UNSPECIFIED MEDICATIONS [Concomitant]
  11. DIAZEPAM [Suspect]
     Indication: THERAPEUTIC PROCEDURE

REACTIONS (7)
  - NAUSEA [None]
  - MALIGNANT MELANOMA STAGE II [None]
  - APNOEA [None]
  - HYPERHIDROSIS [None]
  - WEIGHT INCREASED [None]
  - PALLOR [None]
  - VOMITING [None]
